FAERS Safety Report 7729656-2 (Version None)
Quarter: 2011Q3

REPORT INFORMATION
  Report Type: 
  Country: None (occurrence: None)
  Receive Date: 20110906
  Receipt Date: 20110824
  Transmission Date: 20111222
  Serious: No
  Sender: FDA-Public Use
  Company Number: US-B.I. PHARMACEUTICALS,INC./RIDGEFIELD-2011-BP-20752BP

PATIENT
  Sex: Female

DRUGS (6)
  1. ALBUTEROL SULFATE AUTOHALER [Concomitant]
     Indication: CHRONIC OBSTRUCTIVE PULMONARY DISEASE
     Route: 055
  2. XANAX [Concomitant]
     Indication: ANXIETY
     Dosage: 4 MG
     Route: 048
  3. ALBUTEROL SULFATE AUTOHALER [Concomitant]
     Route: 055
  4. COREG [Concomitant]
     Indication: HYPERTENSION
     Dosage: 6.25 MG
     Route: 048
  5. COREG [Concomitant]
     Indication: SUPRAVENTRICULAR TACHYCARDIA
  6. SPIRIVA [Suspect]
     Indication: CHRONIC OBSTRUCTIVE PULMONARY DISEASE
     Dosage: 18 MCG
     Route: 055
     Dates: start: 20090101

REACTIONS (1)
  - DRUG INEFFECTIVE [None]
